FAERS Safety Report 4668867-X (Version None)
Quarter: 2005Q2

REPORT INFORMATION
  Report Type: 
  Country: None (occurrence: None)
  Receive Date: 20050523
  Receipt Date: 20050218
  Transmission Date: 20051028
  Serious: Yes (Hospitalization, Disabling)
  Sender: FDA-Public Use
  Company Number: US-MERCK-0502USA02976

PATIENT
  Age: 69 Year
  Sex: Male
  Weight: 102 kg

DRUGS (22)
  1. LIPITOR [Concomitant]
     Route: 065
     Dates: start: 20020525, end: 20020824
  2. POTASSIUM (UNSPECIFIED) [Concomitant]
     Indication: BLOOD PRESSURE
     Route: 065
     Dates: start: 20040720, end: 20040920
  3. POTASSIUM (UNSPECIFIED) [Concomitant]
     Route: 065
     Dates: start: 19991001
  4. PLAVIX [Concomitant]
     Route: 065
  5. ATARAX [Concomitant]
     Route: 065
  6. ERY-TAB [Concomitant]
     Route: 065
  7. CODAL DH [Concomitant]
     Route: 065
  8. TESSALON [Concomitant]
     Route: 065
  9. SPIRONOLACTONE [Concomitant]
     Route: 065
  10. ZYRTEC [Concomitant]
     Route: 065
  11. LEVAQUIN [Concomitant]
     Route: 065
  12. COMBIVENT [Concomitant]
     Route: 065
  13. ALDACTONE [Concomitant]
     Route: 065
  14. ALDACTONE [Concomitant]
     Route: 065
  15. VITAMIN E [Concomitant]
     Route: 065
  16. GARLIC EXTRACT [Concomitant]
     Route: 065
  17. ADALAT [Concomitant]
     Route: 065
  18. PEPCID [Concomitant]
     Route: 048
  19. ASPIRIN [Concomitant]
     Route: 065
  20. CALCIUM (UNSPECIFIED) [Concomitant]
     Route: 065
  21. VIOXX [Suspect]
     Indication: ARTHRITIS
     Route: 048
     Dates: start: 20010510, end: 20040901
  22. VIOXX [Suspect]
     Route: 065

REACTIONS (17)
  - ATRIAL FIBRILLATION [None]
  - BLOOD CHOLESTEROL INCREASED [None]
  - BLOOD TRIGLYCERIDES INCREASED [None]
  - BRADYCARDIA [None]
  - BRONCHOPNEUMONIA [None]
  - CAROTID ARTERY DISEASE [None]
  - CHRONIC OBSTRUCTIVE PULMONARY DISEASE [None]
  - CORONARY ARTERY DISEASE [None]
  - GASTROENTERITIS [None]
  - MYOCARDIAL INFARCTION [None]
  - OBESITY [None]
  - OSTEOARTHRITIS [None]
  - PAIN [None]
  - RENAL CYST [None]
  - RENAL IMPAIRMENT [None]
  - RESPIRATORY DISORDER [None]
  - VERTIGO [None]
